FAERS Safety Report 8221625-1 (Version None)
Quarter: 2012Q1

REPORT INFORMATION
  Report Type: 
  Country: None (occurrence: None)
  Receive Date: 20120316
  Receipt Date: 20120305
  Transmission Date: 20120608
  Serious: Yes (Death, Hospitalization, Other)
  Sender: FDA-Public Use
  Company Number: 2012P1007395

PATIENT
  Age: 82 Year
  Sex: Male
  Weight: 74.1631 kg

DRUGS (14)
  1. ISOSORBIDE DINITRATE [Concomitant]
  2. SLO IRON [Concomitant]
  3. SYNTHROID [Concomitant]
  4. PHOSPHORUS BINDER [Concomitant]
  5. DIGOXIN [Suspect]
     Indication: CARDIAC FAILURE CONGESTIVE
     Dosage: 0.215 MG;3X/WK 0.107 MG;3X/WK
     Dates: start: 20110801, end: 20120127
  6. DIGOXIN [Suspect]
     Indication: CARDIAC FAILURE CONGESTIVE
     Dosage: 0.215 MG;3X/WK 0.107 MG;3X/WK
     Dates: start: 20120127, end: 20120205
  7. COUMADIN [Concomitant]
  8. ALBUTEROL [Concomitant]
  9. IBUPROFEN [Concomitant]
  10. CARVEDILOL [Concomitant]
  11. LOSARTAN POTASSIUM [Concomitant]
  12. FORMOTEROL FUMARATE [Concomitant]
  13. IRON [Concomitant]
  14. OMEPRAZOLE [Concomitant]

REACTIONS (5)
  - HYPOTENSION [None]
  - DECREASED APPETITE [None]
  - CARDIAC DISORDER [None]
  - TOXICITY TO VARIOUS AGENTS [None]
  - ASTHENIA [None]
